FAERS Safety Report 15729194 (Version 1)
Quarter: 2018Q4

REPORT INFORMATION
  Report Type: Spontaneous
  Country: US (occurrence: US)
  Receive Date: 20181217
  Receipt Date: 20181217
  Transmission Date: 20190205
  Serious: Yes (Other)
  Sender: FDA-Public Use
  Company Number: US-ALKERMES INC.-ALK-2018-006864

PATIENT
  Age: 57 Year
  Sex: Female

DRUGS (1)
  1. VIVITROL [Suspect]
     Active Substance: NALTREXONE
     Indication: ALCOHOLISM
     Dosage: 380 MG, QMO
     Route: 030
     Dates: start: 201709

REACTIONS (2)
  - Cerebrovascular accident [Recovered/Resolved]
  - Acquired cardiac septal defect [Not Recovered/Not Resolved]

NARRATIVE: CASE EVENT DATE: 201806
